FAERS Safety Report 8282940-9 (Version None)
Quarter: 2012Q2

REPORT INFORMATION
  Report Type: 
  Country: None (occurrence: None)
  Receive Date: 20120410
  Receipt Date: 20120327
  Transmission Date: 20120825
  Serious: Yes (Other)
  Sender: FDA-Public Use
  Company Number: 2012000074

PATIENT
  Age: 73 Year
  Sex: Male

DRUGS (4)
  1. ACEON [Suspect]
     Indication: PRODUCT USED FOR UNKNOWN INDICATION
     Dosage: 2.5 MG, QD, ORAL
     Route: 048
     Dates: start: 20111105
  2. ACEON [Suspect]
     Indication: PRODUCT USED FOR UNKNOWN INDICATION
     Dosage: 2.5 MG, QD, ORAL
     Route: 048
     Dates: start: 20110915
  3. NEBIVOLOL HCL [Concomitant]
  4. AMIODARONE HCL [Concomitant]

REACTIONS (8)
  - TENDON PAIN [None]
  - GAIT DISTURBANCE [None]
  - JOINT INJURY [None]
  - ARTHRALGIA [None]
  - PAIN IN EXTREMITY [None]
  - MUSCLE SPASMS [None]
  - LIGAMENT RUPTURE [None]
  - MYALGIA [None]
